FAERS Safety Report 12364535 (Version 1)
Quarter: 2016Q2

REPORT INFORMATION
  Report Type: Spontaneous
  Country: US (occurrence: US)
  Receive Date: 20160513
  Receipt Date: 20160513
  Transmission Date: 20160815
  Serious: Yes (Life-Threatening, Other)
  Sender: FDA-Public Use
  Company Number: US-SA-2016SA090892

PATIENT
  Age: 65 Year
  Sex: Male

DRUGS (2)
  1. PREDNISONE. [Suspect]
     Active Substance: PREDNISONE
     Indication: RHEUMATOID ARTHRITIS
     Route: 065
  2. LEFLUNOMIDE. [Suspect]
     Active Substance: LEFLUNOMIDE
     Indication: RHEUMATOID ARTHRITIS
     Route: 065

REACTIONS (9)
  - Gastrointestinal haemorrhage [Unknown]
  - Melaena [Unknown]
  - Abdominal pain [Unknown]
  - Flatulence [Unknown]
  - Mucormycosis [Unknown]
  - Immunosuppression [Unknown]
  - Gastrointestinal necrosis [Unknown]
  - Mucosal ulceration [Unknown]
  - Anaemia [Unknown]
